FAERS Safety Report 8532460-9 (Version None)
Quarter: 2012Q3

REPORT INFORMATION
  Report Type: 
  Country: None (occurrence: None)
  Receive Date: 20120716
  Receipt Date: 20120716
  Transmission Date: 20120928
  Serious: Yes (Hospitalization)
  Sender: FDA-Public Use
  Company Number: None

PATIENT
  Age: 44 Year
  Sex: Male
  Weight: 80 kg

DRUGS (1)
  1. KOGENATE [Suspect]
     Indication: HAEMARTHROSIS

REACTIONS (2)
  - MELAENA [None]
  - INCORRECT DOSE ADMINISTERED [None]
